FAERS Safety Report 5557367-0 (Version None)
Quarter: 2007Q4

REPORT INFORMATION
  Report Type: 
  Country: None (occurrence: None)
  Receive Date: 20071214
  Receipt Date: 20071205
  Transmission Date: 20080405
  Serious: Yes (Disabling, Other)
  Sender: FDA-Public Use
  Company Number: DE-BAYER-DE-2007-043056

PATIENT
  Age: 67 Year
  Sex: Male
  Weight: 62 kg

DRUGS (8)
  1. CAMPATH [Suspect]
     Indication: B-CELL SMALL LYMPHOCYTIC LYMPHOMA RECURRENT
     Route: 042
     Dates: start: 20070806, end: 20071107
  2. ACYCLOVIR [Concomitant]
     Dates: start: 20070806
  3. COTRIM FORTE / CO-TRIMOXAZOL [Concomitant]
     Dates: start: 20070806
  4. NEUPOGEN [Concomitant]
     Route: 058
     Dates: start: 20070802, end: 20070828
  5. NEULASTA [Concomitant]
     Indication: NEUTROPENIA
     Route: 058
     Dates: start: 20070817, end: 20071015
  6. SANDOGLOBULIN [Concomitant]
  7. SOLUDECORTIN/ PREDNISOLON [Concomitant]
  8. ?/ PARACETAMOL [Concomitant]

REACTIONS (1)
  - JOINT SWELLING [None]
